FAERS Safety Report 24607082 (Version 1)
Quarter: 2024Q4

REPORT INFORMATION
  Report Type: Spontaneous
  Country: US (occurrence: None)
  Receive Date: 20241108
  Receipt Date: 20241108
  Transmission Date: 20250115
  Serious: Yes (Life-Threatening)
  Sender: Public
  Company Number: None

PATIENT
  Age: 54 Year
  Sex: Male
  Weight: 121 kg

DRUGS (1)
  1. FENTANYL CITRATE [Suspect]
     Active Substance: FENTANYL CITRATE
     Indication: Surgery
     Dosage: 125.00 UG  ONCE INTRAVENOUS?
     Route: 042
     Dates: start: 20240912, end: 20240912

REACTIONS (3)
  - Hypotension [None]
  - Pruritus [None]
  - Cardio-respiratory arrest [None]

NARRATIVE: CASE EVENT DATE: 20240912
